FAERS Safety Report 4854574-7 (Version None)
Quarter: 2005Q4

REPORT INFORMATION
  Report Type: 
  Country: None (occurrence: None)
  Receive Date: 20051213
  Receipt Date: 20051108
  Transmission Date: 20060501
  Serious: Yes (Death)
  Sender: FDA-Public Use
  Company Number: MK200512-0050-1

PATIENT
  Age: 69 Year

DRUGS (3)
  1. OXYCODONE AND ACETAMINOPHEN [Suspect]
     Dates: end: 20040101
  2. PHENYTOIN [Suspect]
  3. ZOLPIDEM TARTRATE [Suspect]

REACTIONS (1)
  - COMPLETED SUICIDE [None]
